FAERS Safety Report 6013541-0 (Version None)
Quarter: 2008Q4

REPORT INFORMATION
  Report Type: 
  Country: None (occurrence: None)
  Receive Date: 20081219
  Receipt Date: 20081216
  Transmission Date: 20090506
  Serious: Yes (Death)
  Sender: FDA-Public Use
  Company Number: PHHY2008CA31594

PATIENT
  Sex: Female

DRUGS (1)
  1. CLOZARIL [Suspect]
     Indication: SCHIZOPHRENIA
     Dosage: 600 MG/DAY
     Dates: start: 19960806, end: 20081128

REACTIONS (2)
  - BLOOD GLUCOSE INCREASED [None]
  - DIABETES MELLITUS [None]
